FAERS Safety Report 7435407-1 (Version None)
Quarter: 2011Q2

REPORT INFORMATION
  Report Type: 
  Country: None (occurrence: None)
  Receive Date: 20110425
  Receipt Date: 20110420
  Transmission Date: 20111010
  Serious: Yes (Other)
  Sender: FDA-Public Use
  Company Number: US-PFIZER INC-2011066618

PATIENT
  Sex: Female
  Weight: 73.46 kg

DRUGS (7)
  1. FLEXERIL [Suspect]
     Indication: SURGERY
  2. CHANTIX [Suspect]
     Dosage: 1 MG, 2X/DAY
     Route: 048
     Dates: start: 20110301
  3. CHANTIX [Suspect]
     Indication: SMOKING CESSATION THERAPY
     Dosage: 0.5 MG, 1X/DAY
     Route: 048
     Dates: start: 20110315, end: 20110301
  4. FLEXERIL [Suspect]
     Indication: MUSCULOSKELETAL DISCOMFORT
     Dosage: 10 MG, AS NEEDED
     Route: 048
     Dates: start: 20060101
  5. LAMICTAL [Concomitant]
     Indication: BIPOLAR DISORDER
     Dosage: 100 MG, 1X/DAY
     Route: 048
  6. XANAX [Concomitant]
     Indication: ANXIETY
     Dosage: UNK
  7. CELEXA [Concomitant]
     Indication: DEPRESSION
     Dosage: UNK

REACTIONS (3)
  - STRESS [None]
  - DEPRESSED MOOD [None]
  - SOMNOLENCE [None]
